FAERS Safety Report 23539032 (Version 3)
Quarter: 2024Q2

REPORT INFORMATION
  Report Type: Report from Study
  Country: US (occurrence: US)
  Receive Date: 20240219
  Receipt Date: 20240422
  Transmission Date: 20240716
  Serious: Yes (Other)
  Sender: FDA-Public Use
  Company Number: US-TAKEDA-2023TUS108650

PATIENT
  Age: 60 Year
  Sex: Female

DRUGS (9)
  1. IXAZOMIB [Suspect]
     Active Substance: IXAZOMIB
     Indication: Plasma cell myeloma
     Dosage: 3 MILLIGRAM
     Route: 048
     Dates: start: 202310
  2. IXAZOMIB [Suspect]
     Active Substance: IXAZOMIB
     Dosage: 3 MILLIGRAM
     Route: 048
     Dates: start: 20231103
  3. IXAZOMIB [Suspect]
     Active Substance: IXAZOMIB
     Dosage: 3 MILLIGRAM
     Route: 048
  4. MORPHINE [Suspect]
     Active Substance: MORPHINE
     Indication: Breakthrough pain
     Dosage: UNK, BID
     Route: 065
  5. REVLIMID [Suspect]
     Active Substance: LENALIDOMIDE
     Indication: Plasma cell myeloma
     Dosage: 15 MILLIGRAM
     Route: 048
  6. DEXAMETHASONE [Concomitant]
     Active Substance: DEXAMETHASONE
     Dosage: UNK
     Route: 065
  7. FORTEO [Concomitant]
     Active Substance: TERIPARATIDE
     Dosage: UNK
     Route: 065
  8. XGEVA [Concomitant]
     Active Substance: DENOSUMAB
     Dosage: UNK
     Route: 065
  9. ELIQUIS [Concomitant]
     Active Substance: APIXABAN
     Dosage: UNK
     Route: 065

REACTIONS (15)
  - Spinal cord compression [Recovering/Resolving]
  - Musculoskeletal chest pain [Not Recovered/Not Resolved]
  - Myalgia [Recovering/Resolving]
  - Bone pain [Not Recovered/Not Resolved]
  - Erythema [Unknown]
  - Paraesthesia [Unknown]
  - Raynaud^s phenomenon [Unknown]
  - Fatigue [Not Recovered/Not Resolved]
  - Back pain [Unknown]
  - Rash erythematous [Not Recovered/Not Resolved]
  - Rash pruritic [Recovered/Resolved]
  - Constipation [Not Recovered/Not Resolved]
  - Diarrhoea [Recovered/Resolved]
  - Swelling [Not Recovered/Not Resolved]
  - Product blister packaging issue [Not Recovered/Not Resolved]

NARRATIVE: CASE EVENT DATE: 20231103
